FAERS Safety Report 5069156-4 (Version None)
Quarter: 2006Q3

REPORT INFORMATION
  Report Type: 
  Country: None (occurrence: None)
  Receive Date: 20060731
  Receipt Date: 20060510
  Transmission Date: 20061208
  Serious: Yes (Death)
  Sender: FDA-Public Use
  Company Number: 200613172GDS

PATIENT
  Age: 60 Year
  Sex: Male
  Weight: 82 kg

DRUGS (3)
  1. APROTININ [Suspect]
     Indication: CORONARY ARTERY BYPASS
     Dosage: SEE IMAGE
     Route: 042
  2. APROTININ [Suspect]
     Indication: VENTRICULAR ASSIST DEVICE INSERTION
     Dosage: SEE IMAGE
     Route: 042
  3. HEPARIN [Concomitant]

REACTIONS (4)
  - DILATATION VENTRICULAR [None]
  - PULMONARY ARTERIAL PRESSURE INCREASED [None]
  - PULMONARY THROMBOSIS [None]
  - VENTRICULAR HYPOKINESIA [None]
